FAERS Safety Report 25216740 (Version 1)
Quarter: 2025Q2

REPORT INFORMATION
  Report Type: Spontaneous
  Country: US (occurrence: US)
  Receive Date: 20250419
  Receipt Date: 20250419
  Transmission Date: 20250716
  Serious: No
  Sender: APOTEX
  Company Number: US-APOTEX-2025AP004331

PATIENT
  Sex: Female

DRUGS (1)
  1. TERIPARATIDE [Suspect]
     Active Substance: TERIPARATIDE
     Indication: Product used for unknown indication
     Route: 065

REACTIONS (10)
  - Muscular weakness [Unknown]
  - Depressed mood [Unknown]
  - Psychiatric symptom [Unknown]
  - Gait disturbance [Unknown]
  - Balance disorder [Unknown]
  - Brain fog [Unknown]
  - Product substitution issue [Unknown]
  - Condition aggravated [Unknown]
  - Insomnia [Unknown]
  - Apathy [Unknown]
